FAERS Safety Report 5367279-3 (Version None)
Quarter: 2007Q2

REPORT INFORMATION
  Report Type: 
  Country: None (occurrence: None)
  Receive Date: 20070622
  Receipt Date: 20070621
  Transmission Date: 20071010
  Serious: Yes (Other)
  Sender: FDA-Public Use
  Company Number: A0658765A

PATIENT
  Sex: Female

DRUGS (1)
  1. CITRUCEL SUGAR-FREE SUSPENSION ORANGE [Suspect]
     Indication: DRUG USE FOR UNKNOWN INDICATION
     Route: 065

REACTIONS (5)
  - ABDOMINAL DISTENSION [None]
  - FAECAL INCONTINENCE [None]
  - FLATULENCE [None]
  - NAUSEA [None]
  - OEDEMA [None]
